FAERS Safety Report 14364331 (Version 1)
Quarter: 2018Q1

REPORT INFORMATION
  Report Type: Report from Study
  Country: US (occurrence: US)
  Receive Date: 20180108
  Receipt Date: 20180108
  Transmission Date: 20180509
  Serious: No
  Sender: FDA-Public Use
  Company Number: US-ALEXION PHARMACEUTICALS INC.-A201800021

PATIENT
  Sex: Male

DRUGS (1)
  1. STRENSIQ [Suspect]
     Active Substance: ASFOTASE ALFA
     Indication: PRODUCT USED FOR UNKNOWN INDICATION
     Dosage: UNKNOWN
     Route: 065

REACTIONS (10)
  - Blood alkaline phosphatase increased [Unknown]
  - Serum procollagen type I N-terminal propeptide increased [Unknown]
  - Leukocyte alkaline phosphatase increased [Unknown]
  - Blood phosphorus increased [Unknown]
  - Haemoglobin decreased [Unknown]
  - Vitamin B6 decreased [Unknown]
  - Red blood cell count decreased [Unknown]
  - Urine phosphorus decreased [Unknown]
  - Blood creatinine increased [Unknown]
  - Procollagen type I C-terminal propeptide increased [Unknown]

NARRATIVE: CASE EVENT DATE: 20170411
